FAERS Safety Report 5430608-6 (Version None)
Quarter: 2007Q3

REPORT INFORMATION
  Report Type: 
  Country: None (occurrence: None)
  Receive Date: 20070830
  Receipt Date: 20070828
  Transmission Date: 20080115
  Serious: Yes (Death)
  Sender: FDA-Public Use
  Company Number: AU-BRISTOL-MYERS SQUIBB COMPANY-13891825

PATIENT

DRUGS (1)
  1. IRBESARTAN [Suspect]

REACTIONS (1)
  - DEATH [None]
